FAERS Safety Report 9895488 (Version 1)
Quarter: 2014Q1

REPORT INFORMATION
  Report Type: Spontaneous
  Country: US (occurrence: US)
  Receive Date: 20140213
  Receipt Date: 20140213
  Transmission Date: 20141002
  Serious: No
  Sender: FDA-Public Use
  Company Number: US-BRISTOL-MYERS SQUIBB COMPANY-19410356

PATIENT
  Age: 75 Year
  Sex: Female
  Weight: 54.42 kg

DRUGS (1)
  1. ORENCIA [Suspect]
     Indication: RHEUMATOID ARTHRITIS
     Dosage: SECOND INFUSION WAS ON 29AUG2013
     Route: 042
     Dates: start: 20130713

REACTIONS (4)
  - Pain in extremity [Unknown]
  - Oral herpes [Unknown]
  - Hot flush [Unknown]
  - Cough [Recovered/Resolved]
